FAERS Safety Report 9645971 (Version 1)
Quarter: 2013Q4

REPORT INFORMATION
  Report Type: Spontaneous
  Country: GB (occurrence: GB)
  Receive Date: 20131025
  Receipt Date: 20131025
  Transmission Date: 20140711
  Serious: Yes (Hospitalization)
  Sender: FDA-Public Use
  Company Number: GB-TEVA-439349ISR

PATIENT
  Age: 66 Year
  Sex: Female
  Weight: 81.9 kg

DRUGS (8)
  1. METHOTREXATE [Suspect]
     Indication: PSORIATIC ARTHROPATHY
     Route: 058
  2. TRIMETHOPRIM [Suspect]
     Indication: URINARY TRACT INFECTION
  3. AMITRIPTYLINE [Concomitant]
  4. GABAPENTIN [Concomitant]
  5. BUPRENORPHINE [Concomitant]
  6. LANSOPRAZOLE [Concomitant]
  7. SULPHASALAZINE [Concomitant]
  8. FOLIC ACID [Concomitant]

REACTIONS (1)
  - Pancytopenia [Recovering/Resolving]
